FAERS Safety Report 4289173-1 (Version None)
Quarter: 2004Q1

REPORT INFORMATION
  Report Type: 
  Country: None (occurrence: None)
  Receive Date: 20040115
  Receipt Date: 20021118
  Transmission Date: 20041129
  Serious: Yes (Hospitalization)
  Sender: FDA-Public Use
  Company Number: 104947

PATIENT
  Age: 78 Year
  Sex: Female

DRUGS (5)
  1. ACTIVASE [Suspect]
     Indication: CEREBRAL HAEMORRHAGE
     Dosage: SINGLE, IV DRIP
     Route: 041
     Dates: start: 20020421, end: 20020421
  2. CLOPIDOGREL(CLOPIDOGREL BISULFATE) [Suspect]
     Indication: TRANSIENT ISCHAEMIC ATTACK
     Dosage: 225 MG, SINGLE, ORAL
     Route: 048
     Dates: start: 20020421, end: 20020421
  3. CLONIDINE [Concomitant]
  4. DILTIAZEM HYDROCHLORIDE [Concomitant]
  5. RAMIPRIL [Concomitant]

REACTIONS (1)
  - CEREBRAL HAEMORRHAGE [None]
